FAERS Safety Report 5267372-X (Version None)
Quarter: 2007Q1

REPORT INFORMATION
  Report Type: 
  Country: None (occurrence: None)
  Receive Date: 20070316
  Receipt Date: 20070305
  Transmission Date: 20070707
  Serious: Yes (Other)
  Sender: FDA-Public Use
  Company Number: JP-ROCHE-484442

PATIENT
  Age: 4 Year
  Sex: Male
  Weight: 13 kg

DRUGS (2)
  1. TAMIFLU [Suspect]
     Dosage: DRUG REPORTED AS: TAMIFLU DRY SYRUP 3%.
     Route: 048
     Dates: start: 20070219, end: 20070219
  2. CALONAL [Concomitant]
     Dosage: GENERIC REPORTED AS: ACETAMINOPHEN. FORM REPORTED AS: FINE GRANULE.
     Route: 048

REACTIONS (3)
  - ABNORMAL BEHAVIOUR [None]
  - DEPRESSED LEVEL OF CONSCIOUSNESS [None]
  - HYPERTONIA [None]
